FAERS Safety Report 17453862 (Version 1)
Quarter: 2020Q1

REPORT INFORMATION
  Report Type: Spontaneous
  Country: US (occurrence: US)
  Receive Date: 20200224
  Receipt Date: 20200224
  Transmission Date: 20200409
  Serious: No
  Sender: FDA-Public Use
  Company Number: US-IBSA PHARMA-TIR-2020-0021

PATIENT
  Sex: Female

DRUGS (3)
  1. TIROSINT [Suspect]
     Active Substance: LEVOTHYROXINE SODIUM
     Indication: AUTOIMMUNE THYROIDITIS
     Dosage: 50MCG TWICE DAILY
     Route: 048
     Dates: start: 20190903
  2. TIROSINT [Suspect]
     Active Substance: LEVOTHYROXINE SODIUM
     Indication: AUTOIMMUNE THYROIDITIS
     Dosage: 112MCG
     Route: 048
     Dates: start: 20190810, end: 20190902
  3. TIROSINT [Suspect]
     Active Substance: LEVOTHYROXINE SODIUM
     Dosage: 50MCG TWICE DAILY
     Route: 048
     Dates: start: 202001

REACTIONS (9)
  - Cough [Recovered/Resolved]
  - Sinus congestion [Not Recovered/Not Resolved]
  - Thyroid function test abnormal [Recovered/Resolved]
  - Drug level above therapeutic [Unknown]
  - Influenza like illness [Recovered/Resolved]
  - Lacrimation increased [Not Recovered/Not Resolved]
  - Rash [Recovered/Resolved]
  - Headache [Not Recovered/Not Resolved]
  - Sinus disorder [Recovered/Resolved]

NARRATIVE: CASE EVENT DATE: 2019
